FAERS Safety Report 6717086-1 (Version None)
Quarter: 2010Q2

REPORT INFORMATION
  Report Type: 
  Country: None (occurrence: None)
  Receive Date: 20100510
  Receipt Date: 20100423
  Transmission Date: 20101027
  Serious: Yes (Disabling, Other)
  Sender: FDA-Public Use
  Company Number: 2010AP000858

PATIENT
  Age: 36 Year
  Sex: Female

DRUGS (3)
  1. SERTRALINE HCL [Suspect]
     Indication: DEPRESSION
     Dosage: 50 MG; PO
     Route: 048
     Dates: start: 20091124, end: 20100319
  2. CITALOPRAM HYDROBROMIDE [Concomitant]
  3. PAROXETINE HCL [Concomitant]

REACTIONS (3)
  - DYSGEUSIA [None]
  - HEPATITIS [None]
  - NAUSEA [None]
